FAERS Safety Report 6549395-3 (Version None)
Quarter: 2010Q1

REPORT INFORMATION
  Report Type: 
  Country: None (occurrence: None)
  Receive Date: 20100125
  Receipt Date: 20100113
  Transmission Date: 20100710
  Serious: Yes (Hospitalization, Other)
  Sender: FDA-Public Use
  Company Number: GB-JNJFOC-20090906504

PATIENT
  Age: 65 Year
  Sex: Female
  Weight: 75 kg

DRUGS (2)
  1. REMICADE [Suspect]
     Indication: PSORIASIS
     Dosage: 2ND INFUSION IN SEP-2009
     Route: 042
     Dates: start: 20090731, end: 20090813
  2. REMICADE [Suspect]
     Dosage: 2ND INFUSION IN SEP-2009
     Route: 042
     Dates: start: 20090731, end: 20090813

REACTIONS (3)
  - INFUSION RELATED REACTION [None]
  - OEDEMA [None]
  - WEIGHT INCREASED [None]
